FAERS Safety Report 12171992 (Version 1)
Quarter: 2016Q1

REPORT INFORMATION
  Report Type: Spontaneous
  Country: US (occurrence: None)
  Receive Date: 20160310
  Receipt Date: 20160310
  Transmission Date: 20160526
  Serious: No
  Sender: FDA-Public Use
  Company Number: None

PATIENT
  Age: 71 Year
  Sex: Female

DRUGS (1)
  1. MYCOPHENOLATE 250MG ROXANE LABORATORIES INC . [Suspect]
     Active Substance: MYCOPHENOLIC ACID
     Indication: LIVER TRANSPLANT
     Route: 048
     Dates: start: 20150202

REACTIONS (2)
  - Arthralgia [None]
  - Inappropriate schedule of drug administration [None]

NARRATIVE: CASE EVENT DATE: 20150202
